FAERS Safety Report 10729555 (Version 1)
Quarter: 2015Q1

REPORT INFORMATION
  Report Type: Spontaneous
  Country: US (occurrence: None)
  Receive Date: 20150121
  Receipt Date: 20150121
  Transmission Date: 20150721
  Serious: No
  Sender: FDA-Public Use
  Company Number: None

PATIENT
  Age: 42 Year
  Sex: Female
  Weight: 58.97 kg

DRUGS (3)
  1. MIRENA [Suspect]
     Active Substance: LEVONORGESTREL
  2. MULTIVITAMIN [Concomitant]
     Active Substance: VITAMINS
  3. IRON [Concomitant]
     Active Substance: IRON

REACTIONS (20)
  - Paraesthesia [None]
  - Muscle spasms [None]
  - Vaginal haemorrhage [None]
  - Anxiety [None]
  - Photophobia [None]
  - Feeling of body temperature change [None]
  - Visual impairment [None]
  - Eye disorder [None]
  - Myalgia [None]
  - Oropharyngeal pain [None]
  - Throat tightness [None]
  - Headache [None]
  - Muscle twitching [None]
  - Weight increased [None]
  - Abdominal distension [None]
  - Rash [None]
  - Depression [None]
  - Mood altered [None]
  - Arthralgia [None]
  - Hypoaesthesia [None]

NARRATIVE: CASE EVENT DATE: 20140709
